FAERS Safety Report 13532528 (Version 4)
Quarter: 2017Q2

REPORT INFORMATION
  Report Type: Report from Study
  Country: ES (occurrence: ES)
  Receive Date: 20170510
  Receipt Date: 20170522
  Transmission Date: 20170830
  Serious: Yes (Death, Hospitalization)
  Sender: FDA-Public Use
  Company Number: ES-ROCHE-1930336

PATIENT
  Age: 43 Year
  Sex: Male
  Weight: 70 kg

DRUGS (6)
  1. RO 6895882 (CEA-IL2V) [Suspect]
     Active Substance: INVESTIGATIONAL PRODUCT
     Indication: METASTATIC NEOPLASM
     Dosage: MOST RECENT DOSE: 25/APR/2017- C2D1
     Route: 042
     Dates: start: 20170404
  2. GABAPENTINA [Concomitant]
     Active Substance: GABAPENTIN
     Route: 065
     Dates: end: 20170429
  3. OBINUTUZUMAB [Suspect]
     Active Substance: OBINUTUZUMAB
     Indication: METASTATIC NEOPLASM
     Dosage: 1000 MG ON TWO CONSECUTIVE DAYS (SPLIT DOSE; DAY -8 AND DAY -7) AS PER PROTOCOL
     Route: 042
     Dates: start: 20170327, end: 20170328
  4. DULOXETINA [Concomitant]
     Active Substance: DULOXETINE
     Route: 065
     Dates: end: 20170429
  5. RANITIDINE. [Concomitant]
     Active Substance: RANITIDINE
     Route: 065
  6. ATEZOLIZUMAB [Suspect]
     Active Substance: ATEZOLIZUMAB
     Indication: METASTATIC NEOPLASM
     Dosage: MOST RECENT DOSE: 25/APR/2017- C2D1
     Route: 042
     Dates: start: 20170404

REACTIONS (2)
  - Drug-induced liver injury [Fatal]
  - Respiratory failure [Not Recovered/Not Resolved]

NARRATIVE: CASE EVENT DATE: 20170426
